FAERS Safety Report 25193366 (Version 3)
Quarter: 2025Q4

REPORT INFORMATION
  Report Type: Report from Study
  Country: US (occurrence: US)
  Receive Date: 20250414
  Receipt Date: 20251205
  Transmission Date: 20260118
  Serious: Yes (Other)
  Sender: ABBVIE
  Company Number: US-ABBVIE-6217725

PATIENT
  Age: 69 Year
  Sex: Male

DRUGS (16)
  1. SKYRIZI [Suspect]
     Active Substance: RISANKIZUMAB-RZAA
     Indication: Crohn^s disease
     Route: 058
     Dates: start: 2024
  2. SKYRIZI [Suspect]
     Active Substance: RISANKIZUMAB-RZAA
     Route: 058
     Dates: start: 20231220
  3. SKYRIZI [Suspect]
     Active Substance: RISANKIZUMAB-RZAA
     Route: 058
     Dates: start: 20231215
  4. CYCLOBENZAPRINE [Concomitant]
     Active Substance: CYCLOBENZAPRINE
     Indication: Product used for unknown indication
  5. HYOSCYAMINE [Concomitant]
     Active Substance: HYOSCYAMINE
     Indication: Product used for unknown indication
  6. ZENPEP [Concomitant]
     Active Substance: PANCRELIPASE AMYLASE\PANCRELIPASE LIPASE\PANCRELIPASE PROTEASE
     Indication: Product used for unknown indication
  7. FLUOXETINE HYDROCHLORIDE [Concomitant]
     Active Substance: FLUOXETINE HYDROCHLORIDE
     Indication: Product used for unknown indication
     Dosage: HCL
  8. CIPROFLOXACIN\DEXAMETHASONE [Concomitant]
     Active Substance: CIPROFLOXACIN\DEXAMETHASONE
     Indication: Product used for unknown indication
  9. PROPANOL (PROPRANOLOL HYDROCHLORIDE) [Concomitant]
     Active Substance: PROPRANOLOL HYDROCHLORIDE
     Indication: Product used for unknown indication
  10. GABAPENTIN [Concomitant]
     Active Substance: GABAPENTIN
     Indication: Product used for unknown indication
  11. LISINOPRIL [Concomitant]
     Active Substance: LISINOPRIL
     Indication: Product used for unknown indication
  12. VITAMIN D [Concomitant]
     Active Substance: VITAMIN D NOS
     Indication: Vitamin supplementation
  13. FLUTICASONE [Concomitant]
     Active Substance: FLUTICASONE
     Indication: Product used for unknown indication
  14. OMEPRAZOLE [Concomitant]
     Active Substance: OMEPRAZOLE
     Indication: Product used for unknown indication
  15. B12 [Concomitant]
     Indication: Product used for unknown indication
  16. DIPHENOXYLATE [Concomitant]
     Active Substance: DIPHENOXYLATE
     Indication: Product used for unknown indication

REACTIONS (4)
  - Colon operation [Unknown]
  - Ileostomy [Unknown]
  - Gastrointestinal inflammation [Unknown]
  - Gastrointestinal bacterial infection [Unknown]

NARRATIVE: CASE EVENT DATE: 20250101
